FAERS Safety Report 14151102 (Version 2)
Quarter: 2020Q2

REPORT INFORMATION
  Report Type: Spontaneous
  Country: US (occurrence: US)
  Receive Date: 20171102
  Receipt Date: 20200607
  Transmission Date: 20200713
  Serious: No
  Sender: FDA-Public Use
  Company Number: US-009507513-1710USA011318

PATIENT
  Sex: Female

DRUGS (6)
  1. INTRON A [Suspect]
     Active Substance: INTERFERON ALFA-2B
     Dosage: 0.5 ML(3MIU), 3 TIMES A WEEK
     Route: 058
  2. INTRON A [Suspect]
     Active Substance: INTERFERON ALFA-2B
     Dosage: 0.5 ML(3MIU), 3 TIMES A WEEK
     Route: 058
     Dates: start: 20141205
  3. AZITHROMYCIN ANHYDROUS. [Concomitant]
     Active Substance: AZITHROMYCIN ANHYDROUS
  4. COMBIVENT [Concomitant]
     Active Substance: ALBUTEROL SULFATE\IPRATROPIUM BROMIDE
  5. HALOPERIDOL. [Concomitant]
     Active Substance: HALOPERIDOL
  6. CLONAZEPAM. [Concomitant]
     Active Substance: CLONAZEPAM

REACTIONS (3)
  - Influenza like illness [Not Recovered/Not Resolved]
  - Product dose omission [Unknown]
  - Circumstance or information capable of leading to medication error [Unknown]
